FAERS Safety Report 6524433-2 (Version None)
Quarter: 2010Q1

REPORT INFORMATION
  Report Type: 
  Country: None (occurrence: None)
  Receive Date: 20100104
  Receipt Date: 20091223
  Transmission Date: 20100710
  Serious: Yes (Hospitalization)
  Sender: FDA-Public Use
  Company Number: FR-WYE-G05209709

PATIENT
  Sex: Female

DRUGS (5)
  1. ADVIL [Suspect]
     Dosage: UNKNOWN
     Route: 048
     Dates: start: 20091023, end: 20091024
  2. ASPIRIN [Suspect]
     Indication: EAR PRURITUS
     Dosage: UNKNOWN
     Route: 048
     Dates: start: 20091022, end: 20091022
  3. AUGMENTIN [Suspect]
     Indication: COUGH
     Route: 048
     Dates: start: 20091014, end: 20091021
  4. AUGMENTIN [Suspect]
     Indication: PRURITUS
  5. AUGMENTIN [Suspect]
     Indication: PHARYNGEAL DISORDER

REACTIONS (9)
  - ANGIOEDEMA [None]
  - BLOOD CALCIUM DECREASED [None]
  - GENERAL PHYSICAL HEALTH DETERIORATION [None]
  - HEADACHE [None]
  - LEUKOCYTOSIS [None]
  - NUCHAL RIGIDITY [None]
  - RASH MACULO-PAPULAR [None]
  - VERTIGO [None]
  - VOMITING [None]
